FAERS Safety Report 10195387 (Version 2)
Quarter: 2014Q2

REPORT INFORMATION
  Report Type: Spontaneous
  Country: IT (occurrence: IT)
  Receive Date: 20140526
  Receipt Date: 20140603
  Transmission Date: 20141212
  Serious: Yes (Hospitalization)
  Sender: FDA-Public Use
  Company Number: PHHY2014IT063224

PATIENT
  Age: 84 Year
  Sex: Female

DRUGS (6)
  1. LEPONEX [Suspect]
     Dosage: 1 DF, DAILY
     Route: 048
     Dates: start: 20140514, end: 20140516
  2. SINEMET [Concomitant]
     Indication: PARKINSON^S DISEASE
     Dosage: 3 DF
     Route: 030
  3. CARDIOASPIRIN [Concomitant]
  4. TAVOR (LORAZEPAM) [Concomitant]
  5. ANTRA [Concomitant]
  6. PROVISACOR [Concomitant]

REACTIONS (3)
  - Sopor [Recovering/Resolving]
  - Psychomotor hyperactivity [Recovering/Resolving]
  - Hypotension [Recovering/Resolving]
